FAERS Safety Report 22143945 (Version 1)
Quarter: 2023Q1

REPORT INFORMATION
  Report Type: Spontaneous
  Country: US (occurrence: US)
  Receive Date: 20230327
  Receipt Date: 20230327
  Transmission Date: 20230417
  Serious: Yes (Other)
  Sender: FDA-Public Use
  Company Number: US-BRISTOL-MYERS SQUIBB COMPANY-2023-042406

PATIENT
  Age: 68 Year
  Sex: Male

DRUGS (2)
  1. OPDIVO [Suspect]
     Active Substance: NIVOLUMAB
     Indication: Renal cell carcinoma
     Dosage: ONLY RECEIVED ONE DOSE
     Route: 042
  2. COBIMETINIB [Concomitant]
     Active Substance: COBIMETINIB
     Indication: Product used for unknown indication
     Dosage: DAILY UNTIL IT WAS DISCONINTIUED

REACTIONS (1)
  - Rhabdomyolysis [Unknown]
